FAERS Safety Report 5994339-6 (Version None)
Quarter: 2008Q4

REPORT INFORMATION
  Report Type: 
  Country: None (occurrence: None)
  Receive Date: 20081212
  Receipt Date: 20080905
  Transmission Date: 20090506
  Serious: No
  Sender: FDA-Public Use
  Company Number: US-ABBOTT-08P-163-0474508-00

PATIENT
  Sex: Male
  Weight: 154.36 kg

DRUGS (8)
  1. HUMIRA [Suspect]
     Indication: RHEUMATOID ARTHRITIS
     Route: 058
  2. METHOTREXATE [Concomitant]
     Indication: RHEUMATOID ARTHRITIS
  3. NEBUTONE [Concomitant]
     Indication: RHEUMATOID ARTHRITIS
  4. FOLIC ACID [Concomitant]
     Indication: RHEUMATOID ARTHRITIS
     Route: 048
  5. ^QUALAQUINE^ [Concomitant]
     Indication: MUSCLE SPASMS
  6. ^GENERIC FLEXERIL^ [Concomitant]
     Indication: RHEUMATOID ARTHRITIS
     Route: 048
  7. DILTIAZEM [Concomitant]
     Indication: BLOOD PRESSURE
     Route: 048
  8. BENAZEPRIL HYDROCHLORIDE [Concomitant]
     Indication: BLOOD PRESSURE
     Route: 048

REACTIONS (4)
  - DIZZINESS [None]
  - FEELING HOT [None]
  - ORAL FUNGAL INFECTION [None]
  - ORAL PAIN [None]
